FAERS Safety Report 6872045-3 (Version None)
Quarter: 2010Q3

REPORT INFORMATION
  Report Type: 
  Country: None (occurrence: None)
  Receive Date: 20100723
  Receipt Date: 20100714
  Transmission Date: 20110219
  Serious: Yes (Other)
  Sender: FDA-Public Use
  Company Number: DK-JNJFOC-20100704555

PATIENT
  Sex: Female

DRUGS (5)
  1. REMICADE [Suspect]
     Indication: PRODUCT USED FOR UNKNOWN INDICATION
     Route: 042
  2. METHOTREXATE [Concomitant]
     Route: 058
  3. METHOTREXATE [Concomitant]
     Route: 058
  4. PREDNISOLON [Concomitant]
  5. SALAZOPYRIN [Concomitant]

REACTIONS (1)
  - BRAIN CANCER METASTATIC [None]
